FAERS Safety Report 4997556-7 (Version None)
Quarter: 2006Q2

REPORT INFORMATION
  Report Type: 
  Country: None (occurrence: None)
  Receive Date: 20060509
  Receipt Date: 20050930
  Transmission Date: 20061013
  Serious: Yes (Hospitalization)
  Sender: FDA-Public Use
  Company Number: US-MERCK-0510USA02065

PATIENT
  Age: 70 Year
  Sex: Male
  Weight: 68 kg

DRUGS (6)
  1. VIOXX [Suspect]
     Indication: BACK PAIN
     Route: 048
     Dates: start: 20000101, end: 20010801
  2. VIOXX [Suspect]
     Route: 048
     Dates: start: 20000101, end: 20010801
  3. SYNTHROID [Concomitant]
     Route: 065
  4. DILTIAZEM MALATE [Concomitant]
     Route: 065
  5. DIOVAN [Concomitant]
     Route: 065
     Dates: start: 20000101
  6. ENDURON [Concomitant]
     Route: 065

REACTIONS (17)
  - ACUTE MYOCARDIAL INFARCTION [None]
  - ANGINA PECTORIS [None]
  - ARRHYTHMIA [None]
  - ARTERIOSCLEROSIS CORONARY ARTERY [None]
  - BLOOD CHOLESTEROL INCREASED [None]
  - BRADYCARDIA [None]
  - CARDIAC FAILURE CONGESTIVE [None]
  - CORONARY ARTERY DISEASE [None]
  - DIPLOPIA [None]
  - DIVERTICULUM [None]
  - DYSPNOEA [None]
  - ERYTHEMA MULTIFORME [None]
  - HYPERLIPIDAEMIA [None]
  - HYPERSENSITIVITY [None]
  - MYOCARDIAL INFARCTION [None]
  - NODULE [None]
  - POLYP [None]
